FAERS Safety Report 13356847 (Version 1)
Quarter: 2017Q1

REPORT INFORMATION
  Report Type: Spontaneous
  Country: ZA (occurrence: ZA)
  Receive Date: 20170321
  Receipt Date: 20170321
  Transmission Date: 20170429
  Serious: Yes (Other)
  Sender: FDA-Public Use
  Company Number: ZA-MYLANLABS-2017M1016951

PATIENT

DRUGS (6)
  1. ESCITALOPRAM [Suspect]
     Active Substance: ESCITALOPRAM OXALATE
     Indication: DEPRESSION
     Dosage: UNK
     Dates: start: 20160923
  2. MYLAN ALPRAZOLAM 1MG [Suspect]
     Active Substance: ALPRAZOLAM
     Indication: STRESS
     Dosage: UNK
     Dates: start: 20160923
  3. ALTOSEC [Suspect]
     Active Substance: OMEPRAZOLE
     Indication: ULCER
     Dosage: UNK
     Dates: start: 20160923
  4. ANGELIQ [Suspect]
     Active Substance: DROSPIRENONE\ESTRADIOL
     Indication: PRODUCT USED FOR UNKNOWN INDICATION
     Dosage: UNK
     Dates: start: 20160923
  5. MOLIPAXIN [Suspect]
     Active Substance: TRAZODONE HYDROCHLORIDE
     Indication: DEPRESSION
     Dosage: UNK
     Dates: start: 20160923
  6. TOPZOL (TIOCONAZOLE) [Suspect]
     Active Substance: TIOCONAZOLE
     Indication: ULCER
     Dosage: UNK
     Dates: start: 20160923

REACTIONS (1)
  - Neck surgery [Recovered/Resolved]

NARRATIVE: CASE EVENT DATE: 20170116
